FAERS Safety Report 21049002 (Version 2)
Quarter: 2022Q3

REPORT INFORMATION
  Report Type: Spontaneous
  Country: US (occurrence: US)
  Receive Date: 20220706
  Receipt Date: 20220706
  Transmission Date: 20221027
  Serious: Yes (Hospitalization)
  Sender: FDA-Public Use
  Company Number: US-PERRIGO-22US009000

PATIENT
  Age: 62 Year
  Sex: Male

DRUGS (4)
  1. NICOTINE POLACRILEX [Suspect]
     Active Substance: NICOTINE
     Indication: Smoking cessation therapy
     Dosage: UNKNOWN, UNKNOWN (INCREASED FREQUENCY IN WEEKS PRIOR TO PRESENTATION)
     Route: 002
  2. NICOTINE POLACRILEX [Suspect]
     Active Substance: NICOTINE
     Indication: Stress
     Dosage: 200 TO 400 MG, OVER A 24 HOUR PERIOD
     Route: 002
  3. NICOTINE POLACRILEX [Suspect]
     Active Substance: NICOTINE
     Indication: Asthenia
  4. CLONAZEPAM [Suspect]
     Active Substance: CLONAZEPAM
     Indication: Generalised anxiety disorder
     Dosage: 1 MG, TID (STOPPED 2 WEEKS PRIOR TO PRESENTATION)
     Route: 048

REACTIONS (2)
  - Tobacco poisoning [Recovered/Resolved]
  - Delirium [Recovered/Resolved]
